FAERS Safety Report 7934814-8 (Version None)
Quarter: 2011Q4

REPORT INFORMATION
  Report Type: 
  Country: None (occurrence: None)
  Receive Date: 20111122
  Receipt Date: 20111115
  Transmission Date: 20120403
  Serious: Yes (Hospitalization)
  Sender: FDA-Public Use
  Company Number: JP-CEPHALON-2011004228

PATIENT
  Sex: Male

DRUGS (9)
  1. BENDAMUSTINE HCL [Suspect]
     Route: 042
     Dates: start: 20110623, end: 20110624
  2. SULFAMETHOXAZOLE AND TRIMETHOPRIM [Concomitant]
  3. RABEPRAZOLE SODIUM [Concomitant]
  4. BENDAMUSTINE HCL [Suspect]
     Indication: B-CELL LYMPHOMA
     Route: 042
     Dates: start: 20110526, end: 20110527
  5. DEXAMETHASONE SODIUM PHOSPHATE [Concomitant]
     Dates: start: 20110526
  6. ITRACONAZOLE [Concomitant]
  7. ACYCLOVIR [Concomitant]
  8. RITUXIMAB [Concomitant]
     Dates: start: 20110526
  9. DEXAMETHASONE [Concomitant]

REACTIONS (1)
  - PNEUMONIA PNEUMOCOCCAL [None]
